FAERS Safety Report 25908587 (Version 2)
Quarter: 2025Q4

REPORT INFORMATION
  Report Type: Spontaneous
  Country: US (occurrence: US)
  Receive Date: 20251010
  Receipt Date: 20251222
  Transmission Date: 20260117
  Serious: No
  Sender: MERCK SHARP & DOHME LLC
  Company Number: US-009507513-2332417

PATIENT
  Sex: Female
  Weight: 74.843 kg

DRUGS (18)
  1. SOTATERCEPT [Suspect]
     Active Substance: SOTATERCEPT
  2. SOTATERCEPT [Suspect]
     Active Substance: SOTATERCEPT
     Dosage: THE DOCTOR IS DECREASING THE WINREVAIR TO STARTER DOSE
  3. SOTATERCEPT [Suspect]
     Active Substance: SOTATERCEPT
  4. SOTATERCEPT [Suspect]
     Active Substance: SOTATERCEPT
  5. TREPROSTINIL [Suspect]
     Active Substance: TREPROSTINIL
     Indication: Pulmonary arterial hypertension
     Dosage: STRENGTH: 1 MG/ML, DOSE: 124.5 NG/KG/MIN, FREQUENCY: CONTINUOUS
     Route: 042
     Dates: start: 201906
  6. TREPROSTINIL [Suspect]
     Active Substance: TREPROSTINIL
     Indication: Pulmonary arterial hypertension
     Dosage: STRENGTH: 1 MG/ML, DOSE: 124.5 NG/KG/MIN, FREQUENCY: CONTINUOUS
  7. PERCOCET [Concomitant]
     Active Substance: ACETAMINOPHEN\OXYCODONE HYDROCHLORIDE
  8. TRACLEER [Concomitant]
     Active Substance: BOSENTAN
  9. ZOLOFT [Concomitant]
     Active Substance: SERTRALINE HYDROCHLORIDE
  10. STERILE DILUENT FOR TREPROSTINIL [Concomitant]
     Active Substance: WATER
  11. ABILIFY [Concomitant]
     Active Substance: ARIPIPRAZOLE
  12. FLUBLOK QUAD [Concomitant]
  13. OXYGEN [Concomitant]
     Active Substance: OXYGEN
  14. SPIRONOLACTONE [Concomitant]
     Active Substance: SPIRONOLACTONE
  15. REVATIO [Concomitant]
     Active Substance: SILDENAFIL CITRATE
  16. STERILE DILUENT FOR REMODULIN [Concomitant]
     Active Substance: WATER
  17. FUROSEMIDE [Concomitant]
     Active Substance: FUROSEMIDE
  18. COREG [Concomitant]
     Active Substance: CARVEDILOL

REACTIONS (1)
  - Weight increased [Unknown]
